FAERS Safety Report 14955676 (Version 1)
Quarter: 2018Q2

REPORT INFORMATION
  Report Type: Report from Study
  Country: US (occurrence: US)
  Receive Date: 20180531
  Receipt Date: 20180531
  Transmission Date: 20180711
  Serious: Yes (Other)
  Sender: FDA-Public Use
  Company Number: US-ROCHE-2127727

PATIENT

DRUGS (1)
  1. BEVACIZUMAB. [Suspect]
     Active Substance: BEVACIZUMAB
     Indication: GLIOMA
     Dosage: EITHER AT A STANDARD DOSING INTERVAL OF EVERY 2 WEEKS OR AN INITIAL STANDARD DOSING OF BEVACIZUMAB
     Route: 042

REACTIONS (16)
  - Hyperglycaemia [Recovered/Resolved]
  - Encephalopathy [Recovered/Resolved]
  - Fatigue [Recovered/Resolved]
  - Haematochezia [Recovered/Resolved]
  - Hypertension [Recovered/Resolved]
  - Epistaxis [Recovered/Resolved]
  - Cough [Recovered/Resolved]
  - Hypersomnia [Recovered/Resolved]
  - Headache [Recovered/Resolved]
  - Hyperkalaemia [Recovered/Resolved]
  - Hypokalaemia [Recovered/Resolved]
  - Hypernatraemia [Recovered/Resolved]
  - Transaminases increased [Recovered/Resolved]
  - Proteinuria [Recovered/Resolved]
  - Hyperbilirubinaemia [Recovered/Resolved]
  - Constipation [Recovered/Resolved]
